FAERS Safety Report 25887042 (Version 1)
Quarter: 2025Q4

REPORT INFORMATION
  Report Type: Spontaneous
  Country: EU (occurrence: EU)
  Receive Date: 20251006
  Receipt Date: 20251006
  Transmission Date: 20260117
  Serious: Yes (Other)
  Sender: SANDOZ
  Company Number: EU-002147023-PHBS2004FR15315

PATIENT
  Age: 26 Year
  Sex: Male

DRUGS (4)
  1. CYCLOSPORINE [Suspect]
     Active Substance: CYCLOSPORINE
     Indication: Prophylaxis against transplant rejection
     Dosage: UNK
     Route: 065
     Dates: start: 1993
  2. IMURAN [Suspect]
     Active Substance: AZATHIOPRINE
     Indication: Prophylaxis against transplant rejection
     Dosage: STOPPED IN 1997 AND RESTARTED AFTER MYCOPHENOLATE MOFETIL WAS DEFINITELY DISCONTINUED
     Route: 065
     Dates: start: 1993
  3. MYCOPHENOLATE MOFETIL [Suspect]
     Active Substance: MYCOPHENOLATE MOFETIL
     Indication: Prophylaxis against transplant rejection
     Dosage: 1 G, BID
     Route: 065
     Dates: start: 1997
  4. MYCOPHENOLATE MOFETIL [Suspect]
     Active Substance: MYCOPHENOLATE MOFETIL
     Dosage: 1.5 G/D
     Route: 065

REACTIONS (15)
  - Intestinal villi atrophy [Recovered/Resolved]
  - Mucosal erosion [Unknown]
  - Diarrhoea [Recovered/Resolved]
  - Asthenia [Unknown]
  - Weight decreased [Unknown]
  - Normocytic anaemia [Unknown]
  - Hypocholesterolaemia [Unknown]
  - Vitamin E decreased [Unknown]
  - Vitamin B12 decreased [Unknown]
  - Blood folate abnormal [Unknown]
  - Antigliadin antibody positive [Recovered/Resolved]
  - Antigliadin antibody positive [Recovered/Resolved]
  - Chronic allograft nephropathy [Unknown]
  - Blood creatinine increased [Unknown]
  - Malabsorption [Unknown]
